FAERS Safety Report 8256338-3 (Version None)
Quarter: 2012Q1

REPORT INFORMATION
  Report Type: 
  Country: None (occurrence: None)
  Receive Date: 20120322
  Receipt Date: 20111220
  Transmission Date: 20120608
  Serious: Yes (Hospitalization)
  Sender: FDA-Public Use
  Company Number: UTC-011870

PATIENT
  Age: 74 Year
  Sex: Female
  Weight: 60.45 kg

DRUGS (7)
  1. COUMADIN [Concomitant]
  2. DIGOXIN [Concomitant]
  3. DIURETICS (DIURETICS) (UNKNOWN) [Concomitant]
  4. OXYGEN (OXYGEN) (UNKNOWN) [Concomitant]
  5. TYVASO (6 MICROGRAM, AEROSOL FOR INHALATION) (TREPROSTINIL SODIUM, TRE [Suspect]
     Indication: PULMONARY ARTERIAL HYPERTENSION
     Dosage: (54 MCG), INHALATION
     Route: 055
     Dates: start: 20091105
  6. LETAIRIS [Suspect]
     Indication: PULMONARY ARTERIAL HYPERTENSION
     Dosage: (5 MG)
  7. REVATIO (SILDENAFIL CITRATE) (UNKNOWN) [Concomitant]

REACTIONS (3)
  - DEHYDRATION [None]
  - ASTHENIA [None]
  - LIVER FUNCTION TEST ABNORMAL [None]
